FAERS Safety Report 15353565 (Version 1)
Quarter: 2018Q3

REPORT INFORMATION
  Report Type: Spontaneous
  Country: JP (occurrence: JP)
  Receive Date: 20180905
  Receipt Date: 20180905
  Transmission Date: 20181010
  Serious: Yes (Death)
  Sender: FDA-Public Use
  Company Number: JP-CELGENEUS-JPN-20180900339

PATIENT
  Age: 53 Year
  Sex: Male

DRUGS (3)
  1. NEUTROGIN [Concomitant]
     Active Substance: LENOGRASTIM
     Indication: NEUTROPHIL COUNT DECREASED
     Dosage: UNKNOWN
     Route: 065
  2. POMALYST [Suspect]
     Active Substance: POMALIDOMIDE
     Indication: PLASMA CELL MYELOMA
     Dosage: UNKNOWN
     Route: 048
     Dates: start: 20171130, end: 2018
  3. FILGRASTIM BS [Suspect]
     Active Substance: FILGRASTIM
     Indication: NEUTROPHIL COUNT DECREASED
     Dosage: UNKNOWN
     Route: 065

REACTIONS (1)
  - Sepsis [Fatal]

NARRATIVE: CASE EVENT DATE: 20180902
